FAERS Safety Report 6675359-5 (Version None)
Quarter: 2010Q2

REPORT INFORMATION
  Report Type: 
  Country: None (occurrence: None)
  Receive Date: 20100409
  Receipt Date: 20100315
  Transmission Date: 20101027
  Serious: No
  Sender: FDA-Public Use
  Company Number: A0846312A

PATIENT
  Age: 52 Year
  Sex: Female

DRUGS (1)
  1. TYKERB [Suspect]
     Indication: DRUG USE FOR UNKNOWN INDICATION
     Dosage: 1000MG PER DAY
     Route: 065
     Dates: start: 20100211

REACTIONS (12)
  - ABDOMINAL PAIN UPPER [None]
  - DIARRHOEA [None]
  - DIZZINESS [None]
  - DRY SKIN [None]
  - EPISTAXIS [None]
  - FATIGUE [None]
  - HYPOAESTHESIA ORAL [None]
  - LACERATION [None]
  - MEMORY IMPAIRMENT [None]
  - PARAESTHESIA ORAL [None]
  - RHINORRHOEA [None]
  - SINUSITIS [None]
